FAERS Safety Report 9516558 (Version 1)
Quarter: 2013Q3

REPORT INFORMATION
  Report Type: Spontaneous
  Country: US (occurrence: None)
  Receive Date: 20130910
  Receipt Date: 20130910
  Transmission Date: 20140515
  Serious: Yes (Death)
  Sender: FDA-Public Use
  Company Number: None

PATIENT
  Age: 78 Year
  Sex: Male

DRUGS (3)
  1. DEPOMEDROL [Suspect]
  2. NACL [Suspect]
  3. LIDOCAINE HCL [Suspect]

REACTIONS (6)
  - Back pain [None]
  - CSF culture positive [None]
  - Meningitis [None]
  - Pseudomonas test positive [None]
  - Pulmonary embolism [None]
  - General physical health deterioration [None]
